APPROVED DRUG PRODUCT: LEVETIRACETAM
Active Ingredient: LEVETIRACETAM
Strength: 750MG
Dosage Form/Route: TABLET, EXTENDED RELEASE;ORAL
Application: A200475 | Product #002
Applicant: AUROBINDO PHARMA USA INC
Approved: Dec 19, 2011 | RLD: No | RS: No | Type: DISCN